FAERS Safety Report 24947551 (Version 2)
Quarter: 2025Q1

REPORT INFORMATION
  Report Type: Spontaneous
  Country: US (occurrence: US)
  Receive Date: 20250210
  Receipt Date: 20250325
  Transmission Date: 20250409
  Serious: No
  Sender: BAUSCH AND LOMB
  Company Number: US-BAUSCHBL-2025BNL001738

PATIENT
  Age: 59 Year
  Sex: Female

DRUGS (2)
  1. MIEBO [Suspect]
     Active Substance: PERFLUOROHEXYLOCTANE
     Indication: Product used for unknown indication
     Dosage: 1 DROP IN EACH EYE 4 TIMES DAILY
     Route: 047
     Dates: start: 202410
  2. MIEBO [Suspect]
     Active Substance: PERFLUOROHEXYLOCTANE
     Dosage: 1 DROP 3 TIMES DAILY
     Route: 047

REACTIONS (7)
  - Diplopia [Unknown]
  - Illness [Unknown]
  - Product use issue [Unknown]
  - Wrong technique in product usage process [Unknown]
  - Product knowledge deficit [Unknown]
  - Intentional product use issue [Unknown]
  - Product complaint [Unknown]
